FAERS Safety Report 15417412 (Version 1)
Quarter: 2018Q3

REPORT INFORMATION
  Report Type: Other
  Country: ES (occurrence: ES)
  Receive Date: 20180924
  Receipt Date: 20180924
  Transmission Date: 20181010
  Serious: Yes (Hospitalization)
  Sender: FDA-Public Use
  Company Number: ES-APOTEX-2018AP021027

PATIENT
  Age: 72 Year
  Sex: Male

DRUGS (1)
  1. MOXIFLOXACIN. [Suspect]
     Active Substance: MOXIFLOXACIN
     Indication: RESPIRATORY TRACT INFECTION
     Dosage: 1 COMPRIMIDO/24 H
     Route: 048
     Dates: start: 20180119, end: 20180124

REACTIONS (1)
  - Allergic oedema [Recovered/Resolved]

NARRATIVE: CASE EVENT DATE: 20180124
